FAERS Safety Report 5065581-6 (Version None)
Quarter: 2006Q3

REPORT INFORMATION
  Report Type: 
  Country: None (occurrence: None)
  Receive Date: 20060725
  Receipt Date: 20060714
  Transmission Date: 20061208
  Serious: Yes (Hospitalization)
  Sender: FDA-Public Use
  Company Number: 2006088256

PATIENT
  Sex: Female
  Weight: 80.5 kg

DRUGS (13)
  1. NORVASC [Suspect]
     Indication: CARDIAC FAILURE CONGESTIVE
     Dosage: 5 MG (5 MG, FREQUENCY:  DAILY INTERNAL:  EVERY DAY), ORAL
     Route: 048
     Dates: start: 20060316, end: 20060331
  2. NORVASC [Suspect]
     Indication: HYPERTENSION
     Dosage: 5 MG (5 MG, FREQUENCY:  DAILY INTERNAL:  EVERY DAY), ORAL
     Route: 048
     Dates: start: 20060316, end: 20060331
  3. ALDOZONE (SPIRONOLACTONE, BUTIZIDE) [Suspect]
     Indication: CARDIAC FAILURE CONGESTIVE
     Dosage: 5 MG/50 MG (FREQUENCY:  DAILY INTERVAL:  EVERY DAY), ORAL
     Route: 048
     Dates: start: 20060316, end: 20060321
  4. ALDOZONE (SPIRONOLACTONE, BUTIZIDE) [Suspect]
     Indication: HYPERTENSION
     Dosage: 5 MG/50 MG (FREQUENCY:  DAILY INTERVAL:  EVERY DAY), ORAL
     Route: 048
     Dates: start: 20060316, end: 20060321
  5. MORPHINE [Suspect]
     Indication: ARTHRALGIA
     Dosage: 90 MG (30 MG, FREQUENCY:  TID INTERVAL:  EVERY DAY), ORAL
     Route: 048
     Dates: start: 20060330, end: 20060331
  6. FOSINOPRIL SODIUM [Suspect]
     Indication: CARDIAC FAILURE CONGESTIVE
     Dosage: ORAL
     Route: 048
     Dates: start: 20060316, end: 20060331
  7. FOSINOPRIL SODIUM [Suspect]
     Indication: HYPERTENSION
     Dosage: ORAL
     Route: 048
     Dates: start: 20060316, end: 20060331
  8. COAPROVEL (HYDROCHLOROTHIAZIDE, IRBESARTAN) [Suspect]
     Indication: CARDIAC FAILURE CONGESTIVE
     Dosage: 12.5 MG/150 MG (FREQUENCY:  DAILY INTERVAL:  EVERY DAY), ORAL
     Route: 048
     Dates: start: 20060316, end: 20060331
  9. COAPROVEL (HYDROCHLOROTHIAZIDE, IRBESARTAN) [Suspect]
     Indication: HYPERTENSION
     Dosage: 12.5 MG/150 MG (FREQUENCY:  DAILY INTERVAL:  EVERY DAY), ORAL
     Route: 048
     Dates: start: 20060316, end: 20060331
  10. TOREM (TORASEMIDE) [Suspect]
     Indication: CARDIAC FAILURE CONGESTIVE
     Dosage: 10 MG (10 MG, FREQUENCY:  DAILY INTERVAL:  EVERY DAY), ORAL
     Route: 048
     Dates: start: 20060321, end: 20060330
  11. TOREM (TORASEMIDE) [Suspect]
     Indication: HYPERTENSION
     Dosage: 10 MG (10 MG, FREQUENCY:  DAILY INTERVAL:  EVERY DAY), ORAL
     Route: 048
     Dates: start: 20060321, end: 20060330
  12. VIBRAMYCIN [Concomitant]
  13. CEFUROXIME AXETIL [Concomitant]

REACTIONS (13)
  - AGITATION [None]
  - ARTHRALGIA [None]
  - CONFUSIONAL STATE [None]
  - DEPRESSED LEVEL OF CONSCIOUSNESS [None]
  - DRUG INTERACTION [None]
  - HALLUCINATION, VISUAL [None]
  - HYPOXIA [None]
  - MYOCLONUS [None]
  - OVERDOSE [None]
  - PANCREATITIS [None]
  - RENAL FAILURE ACUTE [None]
  - SEPTIC SHOCK [None]
  - TACHYCARDIA [None]
